FAERS Safety Report 5752366-8 (Version None)
Quarter: 2008Q2

REPORT INFORMATION
  Report Type: 
  Country: None (occurrence: None)
  Receive Date: 20080529
  Receipt Date: 20080516
  Transmission Date: 20081010
  Serious: Yes (Death, Hospitalization, Congenital Anomaly)
  Sender: FDA-Public Use
  Company Number: A0680195A

PATIENT
  Sex: Female
  Weight: 0.6 kg

DRUGS (16)
  1. PAROXETINE HCL [Suspect]
     Dosage: 20MG PER DAY
     Dates: start: 20030901, end: 20060417
  2. PAXIL [Suspect]
     Dosage: 20MG PER DAY
     Dates: start: 20021125, end: 20030825
  3. DEPAKOTE ER [Concomitant]
     Dates: start: 20030901, end: 20060417
  4. VITAMIN TAB [Concomitant]
  5. CARBAMAZEPINE [Concomitant]
     Dates: start: 20060125, end: 20060313
  6. ZONISAMIDE [Concomitant]
     Dates: start: 20060125, end: 20070510
  7. NITROFURANTOIN [Concomitant]
     Dates: start: 20060516
  8. LEVOTHYROXINE SODIUM [Concomitant]
     Dates: start: 20060224
  9. PROMETHAZINE [Concomitant]
     Dates: start: 20060523
  10. PYRIDOXINE [Concomitant]
     Dates: start: 20060612
  11. DIAZEPAM [Concomitant]
     Dates: start: 20060719, end: 20061012
  12. FLUOCINONIDE [Concomitant]
     Dates: start: 20060825
  13. IRON SUPPLEMENT [Concomitant]
     Dates: start: 20060701
  14. FOLIC ACID [Concomitant]
  15. B6 [Concomitant]
  16. UNISOM [Concomitant]

REACTIONS (9)
  - ATRIAL SEPTAL DEFECT [None]
  - CARDIOPULMONARY FAILURE [None]
  - DRUG EXPOSURE DURING PREGNANCY [None]
  - INTRAVENTRICULAR HAEMORRHAGE [None]
  - LUNG DISORDER [None]
  - PATENT DUCTUS ARTERIOSUS [None]
  - PERSISTENT FOETAL CIRCULATION [None]
  - PREMATURE BABY [None]
  - VENTRICULAR SEPTAL DEFECT [None]
